FAERS Safety Report 9094977 (Version 1)
Quarter: 2013Q1

REPORT INFORMATION
  Report Type: Spontaneous
  Country: US (occurrence: US)
  Receive Date: 20130220
  Receipt Date: 20130220
  Transmission Date: 20140127
  Serious: No
  Sender: FDA-Public Use
  Company Number: US-BIOGENIDEC-2012BI038927

PATIENT
  Age: 69 Year
  Sex: Female

DRUGS (1)
  1. AVONEX [Suspect]
     Indication: MULTIPLE SCLEROSIS
     Route: 030
     Dates: start: 20080123

REACTIONS (6)
  - Balance disorder [Unknown]
  - Mobility decreased [Not Recovered/Not Resolved]
  - Asthenia [Unknown]
  - Chills [Unknown]
  - Headache [Recovered/Resolved]
  - Pyrexia [Recovered/Resolved]
